FAERS Safety Report 20187655 (Version 1)
Quarter: 2021Q4

REPORT INFORMATION
  Report Type: Spontaneous
  Country: US (occurrence: US)
  Receive Date: 20211215
  Receipt Date: 20211215
  Transmission Date: 20220303
  Serious: No
  Sender: FDA-Public Use
  Company Number: US-PFIZER INC-202101771729

PATIENT
  Age: 84 Year
  Sex: Male

DRUGS (5)
  1. GABAPENTIN [Suspect]
     Active Substance: GABAPENTIN
     Indication: Burning sensation
     Dosage: 600 MG
  2. GABAPENTIN [Suspect]
     Active Substance: GABAPENTIN
     Indication: Pain
  3. GABAPENTIN [Suspect]
     Active Substance: GABAPENTIN
     Indication: Diabetic neuropathy
  4. GABAPENTIN [Suspect]
     Active Substance: GABAPENTIN
     Indication: Insomnia
  5. ENBREL [Concomitant]
     Active Substance: ETANERCEPT
     Indication: Psoriasis
     Dosage: 50 MILLIGRAM, 2 TIMES/WK
     Route: 065

REACTIONS (2)
  - Drug ineffective for unapproved indication [Unknown]
  - Off label use [Unknown]
